FAERS Safety Report 18538363 (Version 1)
Quarter: 2020Q4

REPORT INFORMATION
  Report Type: Other
  Country: IN (occurrence: IN)
  Receive Date: 20201124
  Receipt Date: 20201124
  Transmission Date: 20210114
  Serious: Yes (Hospitalization)
  Sender: FDA-Public Use
  Company Number: IN-AJANTA PHARMA USA INC.-2096227

PATIENT
  Age: 80 Year
  Sex: Male

DRUGS (4)
  1. DIVALPROEX SODIUM (ANDA 213181) [Suspect]
     Active Substance: DIVALPROEX SODIUM
     Indication: DEMENTIA
  2. QUETIAPINE. [Concomitant]
     Active Substance: QUETIAPINE
  3. DUOLIN [Concomitant]
  4. ENALAPRIL MALEATE. [Concomitant]
     Active Substance: ENALAPRIL MALEATE

REACTIONS (1)
  - Hydrocephalus [Recovering/Resolving]
